FAERS Safety Report 18189937 (Version 1)
Quarter: 2020Q3

REPORT INFORMATION
  Report Type: Spontaneous
  Country: JP (occurrence: JP)
  Receive Date: 20200824
  Receipt Date: 20200824
  Transmission Date: 20201103
  Serious: Yes (Death, Hospitalization)
  Sender: FDA-Public Use
  Company Number: JP-FERRINGPH-2020FE05510

PATIENT
  Age: 91 Year
  Sex: Male

DRUGS (8)
  1. MAGMITT [Concomitant]
     Active Substance: MAGNESIUM OXIDE
     Route: 065
  2. BUP?4 [Concomitant]
     Active Substance: PROPIVERINE
     Route: 065
  3. BETANIS [Concomitant]
     Active Substance: MIRABEGRON
     Route: 065
  4. DESMOPRESSIN KYOWA [Suspect]
     Active Substance: DESMOPRESSIN
     Indication: DIABETES INSIPIDUS
     Route: 065
     Dates: end: 202008
  5. MEMARY [Concomitant]
     Active Substance: MEMANTINE HYDROCHLORIDE
     Route: 065
  6. MINIRINMELT [Suspect]
     Active Substance: DESMOPRESSIN ACETATE
     Dosage: ONE TABLET DAILY BEFORE BEDTIME
     Route: 065
     Dates: start: 20150305, end: 20150513
  7. EXELON [Concomitant]
     Active Substance: RIVASTIGMINE TARTRATE
     Route: 065
  8. MINIRINMELT [Suspect]
     Active Substance: DESMOPRESSIN ACETATE
     Indication: DIABETES INSIPIDUS
     Dosage: TWO TABLETS DAILY BEFORE BEDTIME
     Route: 065
     Dates: start: 20150514, end: 20200814

REACTIONS (2)
  - Pneumonia [Fatal]
  - Product dose omission issue [Unknown]

NARRATIVE: CASE EVENT DATE: 20200814
